FAERS Safety Report 4318328-2 (Version None)
Quarter: 2004Q1

REPORT INFORMATION
  Report Type: 
  Country: None (occurrence: None)
  Receive Date: 20040317
  Receipt Date: 20030411
  Transmission Date: 20041129
  Serious: Yes (Hospitalization, Disabling, Other)
  Sender: FDA-Public Use
  Company Number: WAES 0304USA01258

PATIENT
  Age: 49 Year
  Sex: Male
  Weight: 148 kg

DRUGS (10)
  1. TYLENOL (CAPLET) [Concomitant]
  2. PROVENTIL [Concomitant]
  3. ASPIRIN [Concomitant]
  4. CARDURA [Concomitant]
     Indication: HYPERTENSION
     Dates: start: 19990101, end: 20010101
  5. FLOVENT [Concomitant]
  6. PRILOSEC [Concomitant]
  7. ZANTAC [Concomitant]
  8. VIOXX [Suspect]
     Indication: KNEE OPERATION
     Route: 048
     Dates: start: 20000101, end: 20010101
  9. VIOXX [Suspect]
     Indication: ARTHRALGIA
     Route: 048
     Dates: start: 20000101, end: 20010101
  10. SEREVENT [Concomitant]

REACTIONS (21)
  - ASTHMA [None]
  - ATRIAL FIBRILLATION [None]
  - ATRIAL FLUTTER [None]
  - BLOOD PRESSURE INCREASED [None]
  - CARDIAC FAILURE CONGESTIVE [None]
  - CHRONIC OBSTRUCTIVE AIRWAYS DISEASE [None]
  - CONGESTIVE CARDIOMYOPATHY [None]
  - CORONARY ARTERY DISEASE [None]
  - DIABETES MELLITUS NON-INSULIN-DEPENDENT [None]
  - DILATATION VENTRICULAR [None]
  - GASTROOESOPHAGEAL REFLUX DISEASE [None]
  - HEART RATE IRREGULAR [None]
  - HYPOAESTHESIA [None]
  - HYPOGLYCAEMIA [None]
  - MITRAL VALVE INCOMPETENCE [None]
  - MYOCARDIAL INFARCTION [None]
  - ORTHOSTATIC HYPOTENSION [None]
  - PAIN IN EXTREMITY [None]
  - PULMONARY HYPERTENSION [None]
  - TACHYCARDIA [None]
  - TRICUSPID VALVE INCOMPETENCE [None]
